FAERS Safety Report 14254175 (Version 1)
Quarter: 2017Q4

REPORT INFORMATION
  Report Type: Spontaneous
  Country: US (occurrence: US)
  Receive Date: 20171205
  Receipt Date: 20171205
  Transmission Date: 20180321
  Serious: Yes (Hospitalization, Other)
  Sender: FDA-Public Use
  Company Number: US-PFIZER INC-2017517049

PATIENT
  Age: 30 Year
  Sex: Male
  Weight: 77 kg

DRUGS (4)
  1. ATROPINE SULFATE/DIPHENOXYLATE HYDROCHLORIDE [Suspect]
     Active Substance: ATROPINE SULFATE\DIPHENOXYLATE HYDROCHLORIDE
     Indication: DIARRHOEA
     Dosage: 2.5MG/0.5MG, UNK
  2. ZANAFLEX [Concomitant]
     Active Substance: TIZANIDINE HYDROCHLORIDE
     Dosage: 4 MG, TABLETS, ONCE DAILY
     Route: 048
  3. TURMERIC [Concomitant]
     Active Substance: HERBALS\TURMERIC
  4. GABAPENTIN. [Concomitant]
     Active Substance: GABAPENTIN
     Dosage: 100MG, CAPSULE, 3 TIMES A DAY
     Route: 048

REACTIONS (12)
  - Anxiety [Unknown]
  - Dry mouth [Unknown]
  - Palpitations [Unknown]
  - Pulmonary embolism [Unknown]
  - Dyspnoea [Unknown]
  - Photosensitivity reaction [Unknown]
  - Pallor [Unknown]
  - Poor quality drug administered [Unknown]
  - Syncope [Unknown]
  - Heart rate increased [Unknown]
  - Product quality issue [Unknown]
  - Dizziness [Unknown]
